FAERS Safety Report 5084149-9 (Version None)
Quarter: 2006Q3

REPORT INFORMATION
  Report Type: 
  Country: None (occurrence: None)
  Receive Date: 20060821
  Receipt Date: 20050411
  Transmission Date: 20061208
  Serious: Yes (Hospitalization)
  Sender: FDA-Public Use
  Company Number: GB-BAYER-200510246BNE

PATIENT
  Age: 67 Year
  Sex: Male

DRUGS (8)
  1. ASPIRIN [Interacting]
     Indication: MYOCARDIAL INFARCTION
     Route: 048
  2. METALYSE [Interacting]
     Indication: MYOCARDIAL INFARCTION
     Route: 042
  3. HEPARIN [Suspect]
     Indication: MYOCARDIAL INFARCTION
     Route: 042
  4. ENOXAPARIN SODIUM [Suspect]
     Indication: MYOCARDIAL INFARCTION
     Dosage: TOTAL DAILY DOSE: 140 MG
     Route: 058
  5. NITRATE [Suspect]
     Indication: CHEST PAIN
     Route: 042
  6. LOSARTAN POSTASSIUM [Concomitant]
     Indication: HYPERTENSION
     Route: 065
  7. DOXAZOSIN MESYLATE [Concomitant]
     Route: 065
  8. HEPARIN [Concomitant]
     Route: 042

REACTIONS (8)
  - ABDOMINAL PAIN UPPER [None]
  - CHEST PAIN [None]
  - DYSPHAGIA [None]
  - HAEMATEMESIS [None]
  - MEDIASTINAL HAEMATOMA [None]
  - ODYNOPHAGIA [None]
  - OESOPHAGEAL DISORDER [None]
  - OESOPHAGEAL MASS [None]
